FAERS Safety Report 18583840 (Version 1)
Quarter: 2020Q4

REPORT INFORMATION
  Report Type: Spontaneous
  Country: US (occurrence: US)
  Receive Date: 20201207
  Receipt Date: 20201207
  Transmission Date: 20210114
  Serious: No
  Sender: FDA-Public Use
  Company Number: US-JNJFOC-20201200352

PATIENT
  Sex: Female

DRUGS (1)
  1. PEPCID [Suspect]
     Active Substance: FAMOTIDINE
     Indication: PRODUCT USED FOR UNKNOWN INDICATION
     Dosage: THE PATIENT WAS PRESCRIBED TO TAKE THE PRODUCT TWICE A DAY AS NEEDED BUT PATIENT TOOK IT AFTER DINNE
     Route: 065

REACTIONS (1)
  - Exposure during pregnancy [Unknown]
